FAERS Safety Report 9181158 (Version 1)
Quarter: 2013Q1

REPORT INFORMATION
  Report Type: Spontaneous
  Country: US (occurrence: US)
  Receive Date: 20130322
  Receipt Date: 20130322
  Transmission Date: 20140127
  Serious: No
  Sender: FDA-Public Use
  Company Number: US-MYLANLABS-2012S1010325

PATIENT
  Sex: Female

DRUGS (2)
  1. EMSAM [Suspect]
     Dosage: QD
     Route: 062
     Dates: start: 2007
  2. ONE-A-DAY /00156401/ [Suspect]
     Dates: start: 201204

REACTIONS (2)
  - Drug ineffective [Not Recovered/Not Resolved]
  - Fatigue [Not Recovered/Not Resolved]
